FAERS Safety Report 9827796 (Version 1)
Quarter: 2013Q4

REPORT INFORMATION
  Report Type: Spontaneous
  Country: US (occurrence: None)
  Receive Date: 20131120
  Receipt Date: 20131120
  Transmission Date: 20140711
  Serious: Yes (Other)
  Sender: FDA-Public Use
  Company Number: 1000048814

PATIENT
  Age: 58 Year
  Sex: Female
  Weight: 42 kg

DRUGS (5)
  1. VIIBRYD [Suspect]
     Indication: DEPRESSION
     Route: 048
     Dates: start: 20130909
  2. LORAZEPAM (LORAZEPAM) (LORAZEPAM) [Concomitant]
  3. NEURONTIN (GABAPENTIN) (GABAPENTIN) [Concomitant]
  4. VIT B COMPLEX (VITAMIN B COMPLEX) (VITAMIN B COMPLEX) [Concomitant]
  5. CRAMBERRY SUPPLEMENT (CRANBERRY SUPPLEMENT) (CRANBERRY SUPPLEMENT) [Concomitant]

REACTIONS (2)
  - Diarrhoea [None]
  - Insomnia [None]
